FAERS Safety Report 15701314 (Version 1)
Quarter: 2018Q4

REPORT INFORMATION
  Report Type: Spontaneous
  Country: US (occurrence: US)
  Receive Date: 20181207
  Receipt Date: 20181207
  Transmission Date: 20190205
  Serious: Yes (Hospitalization, Other)
  Sender: FDA-Public Use
  Company Number: US-ALLERGAN-1856387US

PATIENT
  Age: 39 Year
  Sex: Male

DRUGS (11)
  1. FLEXERIL [Concomitant]
     Active Substance: CYCLOBENZAPRINE HYDROCHLORIDE
  2. GENTAMICIN UNK [Suspect]
     Active Substance: GENTAMICIN
     Indication: PRODUCT USED FOR UNKNOWN INDICATION
  3. ICLUSIG [Suspect]
     Active Substance: PONATINIB
     Indication: CHRONIC MYELOID LEUKAEMIA
     Dosage: 45 MG, QD
     Route: 048
     Dates: start: 20180430
  4. NAFCILLIN [Concomitant]
     Active Substance: NAFCILLIN\NAFCILLIN SODIUM
  5. ICLUSIG [Suspect]
     Active Substance: PONATINIB
     Dosage: 30 MG, BID
     Route: 048
  6. ICLUSIG [Suspect]
     Active Substance: PONATINIB
     Dosage: 45 MG, QD
     Route: 048
  7. LIDOCAINE. [Concomitant]
     Active Substance: LIDOCAINE
  8. PREDNISONE. [Concomitant]
     Active Substance: PREDNISONE
  9. ICLUSIG [Suspect]
     Active Substance: PONATINIB
     Dosage: 30 MG, QD
     Route: 048
  10. NUTRITION 12 [Concomitant]
     Active Substance: IRON\MINERALS\VITAMINS
  11. PAIN MEDICATION [Concomitant]
     Active Substance: UNSPECIFIED INGREDIENT

REACTIONS (12)
  - Acute kidney injury [Unknown]
  - Vomiting [Unknown]
  - Pain [Unknown]
  - Splenomegaly [Unknown]
  - Staphylococcal sepsis [Unknown]
  - White blood cell count abnormal [Unknown]
  - Toxicity to various agents [Unknown]
  - Haematemesis [Unknown]
  - Weight decreased [Unknown]
  - Body temperature increased [Unknown]
  - Hepatomegaly [Unknown]
  - Rash generalised [Unknown]
